FAERS Safety Report 4634288-9 (Version None)
Quarter: 2005Q2

REPORT INFORMATION
  Report Type: 
  Country: None (occurrence: None)
  Receive Date: 20050413
  Receipt Date: 20050410
  Transmission Date: 20051028
  Serious: Yes (Other)
  Sender: FDA-Public Use
  Company Number: PHNU2005DE01613

PATIENT
  Age: 63 Year
  Sex: Female
  Weight: 69 kg

DRUGS (2)
  1. COMBIPATCH [Suspect]
     Route: 062
  2. SOTALEX MITE [Concomitant]
     Route: 048

REACTIONS (9)
  - ARTHRALGIA [None]
  - ASTHENIA [None]
  - CONJUNCTIVITIS [None]
  - JOINT SWELLING [None]
  - MOBILITY DECREASED [None]
  - MUCOSAL INFLAMMATION [None]
  - SWELLING FACE [None]
  - THROMBOCYTOPENIA [None]
  - WEIGHT DECREASED [None]
